FAERS Safety Report 9477493 (Version 1)
Quarter: 2013Q3

REPORT INFORMATION
  Report Type: Spontaneous
  Country: DK (occurrence: DK)
  Receive Date: 20130827
  Receipt Date: 20130827
  Transmission Date: 20140515
  Serious: Yes (Disabling)
  Sender: FDA-Public Use
  Company Number: DK-ROCHE-1264572

PATIENT
  Age: 76 Year
  Sex: Female
  Weight: 67 kg

DRUGS (4)
  1. BONDRONAT [Suspect]
     Indication: METASTASES TO BONE
     Dosage: STYRKE: 50 MG
     Route: 048
     Dates: start: 20060101, end: 20130819
  2. CAPECITABINE [Concomitant]
     Indication: BREAST CANCER
     Route: 065
     Dates: start: 20110701
  3. METHOTRATE [Concomitant]
     Indication: RHEUMATOID ARTHRITIS
     Route: 065
     Dates: start: 20110516
  4. FOLINSYRE [Concomitant]
     Indication: RHEUMATOID ARTHRITIS
     Route: 065
     Dates: start: 20110516

REACTIONS (1)
  - Stress fracture [Not Recovered/Not Resolved]
